FAERS Safety Report 6068786-0 (Version None)
Quarter: 2009Q1

REPORT INFORMATION
  Report Type: 
  Country: None (occurrence: None)
  Receive Date: 20090206
  Receipt Date: 20090128
  Transmission Date: 20090719
  Serious: Yes (Hospitalization)
  Sender: FDA-Public Use
  Company Number: US-AVENTIS-200910025US

PATIENT
  Sex: Female
  Weight: 66.27 kg

DRUGS (7)
  1. LANTUS [Suspect]
     Route: 058
     Dates: start: 20030101
  2. LANTUS [Concomitant]
     Dosage: DOSE: UNK
  3. INSULATARD NPH HUMAN [Concomitant]
     Indication: DIABETES MELLITUS
     Route: 058
  4. HUMULIN R [Concomitant]
     Indication: DIABETES MELLITUS
     Dosage: DOSE: SCALE USED FOR DAILY DOSE
  5. COUMADIN [Concomitant]
     Dosage: DOSE: VARIES
  6. ASPIRIN [Concomitant]
  7. VALSARTAN [Concomitant]

REACTIONS (3)
  - BLOOD GLUCOSE INCREASED [None]
  - MYOCARDIAL INFARCTION [None]
  - OFF LABEL USE [None]
